FAERS Safety Report 6681104-X (Version None)
Quarter: 2010Q2

REPORT INFORMATION
  Report Type: 
  Country: None (occurrence: None)
  Receive Date: 20100414
  Receipt Date: 20100408
  Transmission Date: 20101027
  Serious: Yes (Other)
  Sender: FDA-Public Use
  Company Number: BE-ROCHE-689008

PATIENT
  Sex: Male
  Weight: 92 kg

DRUGS (13)
  1. ROACTEMRA [Suspect]
     Indication: RHEUMATOID ARTHRITIS
     Dosage: TOTAL MONTHLY DOSE: 720 MG
     Route: 042
     Dates: start: 20090714
  2. ROACTEMRA [Suspect]
     Route: 042
     Dates: start: 20100118
  3. ROACTEMRA [Suspect]
     Route: 042
     Dates: start: 20100210
  4. ROACTEMRA [Suspect]
     Route: 042
     Dates: start: 20100310
  5. METHOTREXATE [Concomitant]
     Route: 048
  6. MOBIC [Concomitant]
     Route: 048
  7. MAREVAN [Concomitant]
     Dosage: DOSE ADJUSTED TO INR
     Route: 048
  8. UNI DIAMICRON [Concomitant]
     Route: 048
  9. ZOCOR [Concomitant]
     Route: 048
  10. DILTIAZEM HCL [Concomitant]
     Route: 048
  11. ASAFLOW [Concomitant]
     Route: 048
  12. FOLIC ACID [Concomitant]
     Route: 048
  13. OMEPRAZOLE [Concomitant]
     Route: 048

REACTIONS (1)
  - TRANSIENT ISCHAEMIC ATTACK [None]
